FAERS Safety Report 18321314 (Version 1)
Quarter: 2020Q3

REPORT INFORMATION
  Report Type: Spontaneous
  Country: FR (occurrence: FR)
  Receive Date: 20200928
  Receipt Date: 20200928
  Transmission Date: 20201103
  Serious: Yes (Other)
  Sender: FDA-Public Use
  Company Number: FR-MYLANLABS-2020M1080892

PATIENT
  Age: 14 Year
  Sex: Male

DRUGS (2)
  1. ACICLOVIR [Suspect]
     Active Substance: ACYCLOVIR
     Indication: ENCEPHALITIS
     Dosage: 10 MILLIGRAM/KILOGRAM, Q8H
     Route: 041
     Dates: start: 20200826, end: 20200828
  2. GENTAMICINE                        /00047101/ [Interacting]
     Active Substance: GENTAMICIN
     Indication: ENCEPHALITIS
     Dosage: 5 MG/KG/48H (2 DOSES AU TOTAL)
     Route: 041
     Dates: start: 20200826, end: 20200828

REACTIONS (4)
  - Acute kidney injury [Recovering/Resolving]
  - Drug interaction [Unknown]
  - Crystalluria [Recovered/Resolved]
  - Renal tubular disorder [Recovering/Resolving]

NARRATIVE: CASE EVENT DATE: 20200828
